FAERS Safety Report 12424923 (Version 1)
Quarter: 2016Q2

REPORT INFORMATION
  Report Type: Spontaneous
  Country: DK (occurrence: IT)
  Receive Date: 20160601
  Receipt Date: 20160601
  Transmission Date: 20160815
  Serious: Yes (Other)
  Sender: FDA-Public Use
  Company Number: IT-FRI-1000084954

PATIENT
  Age: 21 Year
  Sex: Female

DRUGS (4)
  1. ABILIFY ^5MG COMPRESSE^/ ARIPIPRAZOLE [Concomitant]
     Indication: PRODUCT USED FOR UNKNOWN INDICATION
     Route: 048
  2. ZOLOFT ^50MG COMPRESSE RIVESTITE CON FILM^/SERTRALINE [Concomitant]
     Indication: PRODUCT USED FOR UNKNOWN INDICATION
     Route: 048
  3. ESCITALOPRAM [Suspect]
     Active Substance: ESCITALOPRAM OXALATE
     Indication: DEPRESSION
     Dosage: OVERDOSE: 14 DOSAGE FORMS
     Route: 048
  4. ABILIFY ^5MG COMPRESSE^/ ARIPIPRAZOLE [Concomitant]
     Route: 048

REACTIONS (1)
  - Drug abuse [Unknown]

NARRATIVE: CASE EVENT DATE: 20160505
